FAERS Safety Report 21439288 (Version 1)
Quarter: 2022Q4

REPORT INFORMATION
  Report Type: Spontaneous
  Country: US (occurrence: None)
  Receive Date: 20221008
  Receipt Date: 20221008
  Transmission Date: 20230113
  Serious: Yes (Other)
  Sender: FDA-Public Use
  Company Number: None

PATIENT
  Age: 45 Year
  Sex: Female
  Weight: 89.81 kg

DRUGS (14)
  1. PREDNISONE [Suspect]
     Active Substance: PREDNISONE
     Indication: Acute leukaemia
     Dosage: 200 MG QD5ON23OFF?
     Route: 048
  2. BACTRIM [Concomitant]
     Active Substance: SULFAMETHOXAZOLE\TRIMETHOPRIM
  3. DOCUSATE [Concomitant]
     Active Substance: DOCUSATE
  4. FAMOTIDINE [Concomitant]
     Active Substance: FAMOTIDINE
  5. FERROUS SULFATE [Concomitant]
     Active Substance: FERROUS SULFATE
  6. KLOR-CON [Concomitant]
     Active Substance: POTASSIUM CHLORIDE
  7. LEXAPRO [Concomitant]
     Active Substance: ESCITALOPRAM OXALATE
  8. LOPERAMIDE [Concomitant]
     Active Substance: LOPERAMIDE
  9. MARIBAVIR [Concomitant]
     Active Substance: MARIBAVIR
  10. METHOTREXATE SODIUM [Concomitant]
     Active Substance: METHOTREXATE SODIUM
  11. MERCAPTOPURINE [Concomitant]
     Active Substance: MERCAPTOPURINE
  12. METOPROLOL [Concomitant]
     Active Substance: METOPROLOL
  13. SINEMET [Concomitant]
     Active Substance: CARBIDOPA\LEVODOPA
  14. VINCRISTINE [Concomitant]
     Active Substance: VINCRISTINE

REACTIONS (1)
  - Cerebrovascular accident [None]
